FAERS Safety Report 21095444 (Version 1)
Quarter: 2022Q3

REPORT INFORMATION
  Report Type: Report from Study
  Country: CA (occurrence: CA)
  Receive Date: 20220718
  Receipt Date: 20220718
  Transmission Date: 20221027
  Serious: Yes (Other)
  Sender: FDA-Public Use
  Company Number: CA-Horizon-RAV-0229-2020

PATIENT

DRUGS (15)
  1. RAVICTI [Suspect]
     Active Substance: GLYCEROL PHENYLBUTYRATE
     Indication: Urea cycle disorder
     Dosage: 4.4 G
     Route: 048
     Dates: start: 201701
  2. RAVICTI [Suspect]
     Active Substance: GLYCEROL PHENYLBUTYRATE
     Indication: Ornithine transcarbamoylase deficiency
     Dosage: 2.25 ML TID INCREASED TO 3.2 ML 3 SEPARATED DOSES
     Route: 048
     Dates: start: 20170411
  3. RAVICTI [Suspect]
     Active Substance: GLYCEROL PHENYLBUTYRATE
     Dosage: 4.4 ML, TID
     Route: 065
     Dates: start: 20170411
  4. RAVICTI [Suspect]
     Active Substance: GLYCEROL PHENYLBUTYRATE
     Dosage: 3.2 ML (3.52 G), TID
     Route: 048
  5. RAVICTI [Suspect]
     Active Substance: GLYCEROL PHENYLBUTYRATE
     Dosage: 4 ML, TID
     Route: 048
  6. RAVICTI [Suspect]
     Active Substance: GLYCEROL PHENYLBUTYRATE
     Dosage: 6.9 ML, TID
     Route: 065
  7. CITRULLINE [Concomitant]
     Active Substance: CITRULLINE
     Indication: Ornithine transcarbamoylase deficiency
     Dosage: 1.9 G
     Dates: start: 201203
  8. CITRULLINE [Concomitant]
     Active Substance: CITRULLINE
     Dosage: 1.6 G, TID
     Route: 048
  9. CITRULLINE [Concomitant]
     Active Substance: CITRULLINE
     Dosage: 600MG QID 4 SEPARATED DOSES
  10. CITRULLINE [Concomitant]
     Active Substance: CITRULLINE
     Dosage: 4.8 G PER DAY  (3.4 G/M2 BSA BASED ON 46.9KG WEIGHT) DIVIDED INTO 3 DOSE
  11. VITAMIN D NOS [Concomitant]
     Active Substance: VITAMIN D NOS
  12. FERINSOL [Concomitant]
  13. MULTIVITAMIN GUMMY BEARS [Concomitant]
     Dosage: TAKE 1 EACH BY MOUTH ONCE DAILY
  14. COVID-19 VACCINE [Concomitant]
     Indication: Immunisation
     Dosage: FIRST DOSE
  15. COVID-19 VACCINE [Concomitant]
     Dosage: SECOND DOSE

REACTIONS (5)
  - Autism spectrum disorder [Unknown]
  - Nasal congestion [Recovered/Resolved]
  - Obsessive thoughts [Unknown]
  - Compulsions [Unknown]
  - Amino acid level increased [Unknown]
